FAERS Safety Report 6136308-1 (Version None)
Quarter: 2009Q1

REPORT INFORMATION
  Report Type: 
  Country: None (occurrence: None)
  Receive Date: 20090325
  Receipt Date: 20090310
  Transmission Date: 20090719
  Serious: Yes (Hospitalization)
  Sender: FDA-Public Use
  Company Number: 2009S1004249

PATIENT
  Age: 75 Year
  Sex: Female
  Weight: 83 kg

DRUGS (17)
  1. SITAGLIPTIN [Suspect]
     Indication: DIABETES MELLITUS
     Dosage: 1000 MG/DAILY;
  2. LOVASTATIN [Suspect]
     Dosage: 40 MG; DAILY;
  3. PENICILLIN [Concomitant]
  4. ROSIGLITAZONE [Concomitant]
  5. PIOGLITAZONE [Concomitant]
  6. DILTIAZEM [Concomitant]
  7. GLIMEPIRIDE [Concomitant]
  8. LEVOTHYROXINE SODIUM [Concomitant]
  9. HYDROCHLOROTHIAZIDE [Concomitant]
  10. METOCLOPRAMIDE [Concomitant]
  11. ALENDRONIC ACID [Concomitant]
  12. ESOMEPRAZOLE MAGNESIUM [Concomitant]
  13. TIOTROPIUM BROMIDE [Concomitant]
  14. TRIOBE /01502401/ [Concomitant]
  15. HYDROMORPHONE HCL [Concomitant]
  16. METHOCARBAMOL [Concomitant]
  17. DI-GESIC /00016701/ [Concomitant]

REACTIONS (7)
  - ALANINE AMINOTRANSFERASE INCREASED [None]
  - ANXIETY [None]
  - ASPARTATE AMINOTRANSFERASE INCREASED [None]
  - BLOOD CREATINE PHOSPHOKINASE MB INCREASED [None]
  - BLOOD PRESSURE INCREASED [None]
  - DRUG INTERACTION [None]
  - RHABDOMYOLYSIS [None]
